FAERS Safety Report 9304238 (Version 2)
Quarter: 2013Q2

REPORT INFORMATION
  Report Type: Spontaneous
  Country: US (occurrence: US)
  Receive Date: 20130522
  Receipt Date: 20130626
  Transmission Date: 20140414
  Serious: Yes (Hospitalization)
  Sender: FDA-Public Use
  Company Number: US-PFIZER INC-2013155188

PATIENT
  Age: 76 Year
  Sex: Female
  Weight: 60.77 kg

DRUGS (6)
  1. LIPITOR [Suspect]
     Indication: BLOOD CHOLESTEROL INCREASED
     Dosage: 20 MG, DAILY
     Dates: start: 201210
  2. PREMARIN [Suspect]
     Indication: HYSTERECTOMY
     Dosage: 0.625 MG, DAILY
     Route: 048
     Dates: start: 1978
  3. XANAX [Concomitant]
     Indication: ANXIETY
     Dosage: 1 MG, 2X/DAY
  4. ZEBETA [Concomitant]
     Dosage: 5 MG, DAILY
  5. VITAMIN D [Concomitant]
     Dosage: UNK
  6. VITAMIN E [Concomitant]
     Dosage: UNK

REACTIONS (1)
  - Enterocolitis infectious [Recovering/Resolving]
